FAERS Safety Report 8281648-3 (Version None)
Quarter: 2012Q2

REPORT INFORMATION
  Report Type: 
  Country: None (occurrence: None)
  Receive Date: 20120413
  Receipt Date: 20120410
  Transmission Date: 20120825
  Serious: Yes (Other)
  Sender: FDA-Public Use
  Company Number: US-PFIZER INC-2012050002

PATIENT
  Sex: Female
  Weight: 68.027 kg

DRUGS (9)
  1. METFORMIN [Concomitant]
     Indication: DIABETES MELLITUS
     Dosage: UNK
  2. LASIX [Concomitant]
     Dosage: UNK
  3. PERCOCET [Concomitant]
     Dosage: UNK, AS NEEDED
  4. VALIUM [Concomitant]
     Indication: MUSCLE SPASMS
     Dosage: 5 MG, 1X/DAY
  5. NEURONTIN [Suspect]
     Indication: NEURALGIA
     Dosage: 300 MG, 2X/DAY
     Route: 048
     Dates: end: 20110901
  6. LYRICA [Suspect]
     Indication: NEURALGIA
     Dosage: 100 MG, 3X/DAY
     Route: 048
     Dates: start: 20111011
  7. MORPHINE [Concomitant]
     Dosage: UNK, AS NEEDED
  8. POTASSIUM [Concomitant]
     Dosage: UNK
  9. GLIPIZIDE [Concomitant]
     Indication: DIABETES MELLITUS
     Dosage: UNK

REACTIONS (3)
  - NERVE COMPRESSION [None]
  - GRIP STRENGTH DECREASED [None]
  - PAIN [None]
